FAERS Safety Report 6814935-3 (Version None)
Quarter: 2010Q3

REPORT INFORMATION
  Report Type: 
  Country: None (occurrence: None)
  Receive Date: 20100702
  Receipt Date: 20100628
  Transmission Date: 20110219
  Serious: Yes (Other)
  Sender: FDA-Public Use
  Company Number: BR-ROCHE-712103

PATIENT
  Sex: Female
  Weight: 60 kg

DRUGS (2)
  1. RIVOTRIL [Suspect]
     Indication: LABYRINTHITIS
     Route: 048
     Dates: start: 19960101, end: 20100627
  2. RIVOTRIL [Suspect]
     Route: 048
     Dates: start: 20100628

REACTIONS (4)
  - DRUG ADMINISTRATION ERROR [None]
  - DRUG INEFFECTIVE [None]
  - HYPERHIDROSIS [None]
  - OSTEOMYELITIS [None]
